FAERS Safety Report 19779871 (Version 2)
Quarter: 2021Q4

REPORT INFORMATION
  Report Type: Spontaneous
  Country: US (occurrence: US)
  Receive Date: 20210902
  Receipt Date: 20211220
  Transmission Date: 20220303
  Serious: No
  Sender: FDA-Public Use
  Company Number: US-VERTEX PHARMACEUTICALS-2021-013328

PATIENT
  Age: 58 Year
  Sex: Female

DRUGS (1)
  1. TRIKAFTA [Suspect]
     Active Substance: ELEXACAFTOR\IVACAFTOR\TEZACAFTOR
     Indication: Cystic fibrosis
     Dosage: 1-2 ORANGE TAB DAILY, NO BLUE TAB
     Route: 048
     Dates: start: 201912

REACTIONS (3)
  - Arthralgia [Not Recovered/Not Resolved]
  - Antinuclear antibody positive [Unknown]
  - Histone antibody positive [Unknown]

NARRATIVE: CASE EVENT DATE: 20210101
